FAERS Safety Report 19268894 (Version 1)
Quarter: 2021Q2

REPORT INFORMATION
  Report Type: Report from Study
  Country: CA (occurrence: CA)
  Receive Date: 20210518
  Receipt Date: 20210518
  Transmission Date: 20210717
  Serious: Yes (Death)
  Sender: FDA-Public Use
  Company Number: CA-HLS-202107508

PATIENT
  Age: 58 Year
  Sex: Male

DRUGS (1)
  1. CLOZARIL [Suspect]
     Active Substance: CLOZAPINE
     Indication: DEATH
     Route: 048
     Dates: start: 20130411, end: 20210503

REACTIONS (1)
  - Death [Fatal]

NARRATIVE: CASE EVENT DATE: 20210503
